FAERS Safety Report 23054720 (Version 1)
Quarter: 2023Q4

REPORT INFORMATION
  Report Type: Spontaneous
  Country: US (occurrence: US)
  Receive Date: 20231011
  Receipt Date: 20231011
  Transmission Date: 20240110
  Serious: No
  Sender: FDA-Public Use
  Company Number: US-SA-SAC20231010000958

PATIENT
  Age: 18 Year
  Sex: Male

DRUGS (2)
  1. ELOCTATE [Suspect]
     Active Substance: EFMOROCTOCOG ALFA
     Indication: Factor VIII deficiency
     Dosage: INFUSE 4000 UNITS (3600-4400) SLOW IV PUSH EVERY OTHER DAY AND DAILY AS NEEDED
     Route: 042
     Dates: start: 202302
  2. ELOCTATE [Suspect]
     Active Substance: EFMOROCTOCOG ALFA
     Indication: Factor VIII deficiency
     Dosage: INFUSE 4000 UNITS (3600-4400) SLOW IV PUSH EVERY OTHER DAY AND DAILY AS NEEDED
     Route: 042
     Dates: start: 202302

REACTIONS (2)
  - Post procedural haemorrhage [Unknown]
  - Head injury [Unknown]

NARRATIVE: CASE EVENT DATE: 20230926
